FAERS Safety Report 8481240-1 (Version None)
Quarter: 2012Q3

REPORT INFORMATION
  Report Type: 
  Country: None (occurrence: None)
  Receive Date: 20120702
  Receipt Date: 20120621
  Transmission Date: 20120928
  Serious: Yes (Hospitalization, Other)
  Sender: FDA-Public Use
  Company Number: US-JNJFOC-20120517263

PATIENT
  Sex: Male
  Weight: 94.8 kg

DRUGS (4)
  1. HALDOL [Suspect]
     Indication: PRODUCT USED FOR UNKNOWN INDICATION
     Route: 065
     Dates: start: 20120301, end: 20120301
  2. CLOZARIL [Concomitant]
     Route: 065
  3. ZYPREXA [Suspect]
     Indication: PRODUCT USED FOR UNKNOWN INDICATION
     Route: 065
     Dates: start: 20120301, end: 20120301
  4. ATIVAN [Suspect]
     Indication: PRODUCT USED FOR UNKNOWN INDICATION
     Route: 065
     Dates: start: 20120301, end: 20120301

REACTIONS (6)
  - STARING [None]
  - BALANCE DISORDER [None]
  - DEHYDRATION [None]
  - URINARY INCONTINENCE [None]
  - AMNESIA [None]
  - HYPERHIDROSIS [None]
